FAERS Safety Report 13261830 (Version 1)
Quarter: 2017Q1

REPORT INFORMATION
  Report Type: Spontaneous
  Country: US (occurrence: US)
  Receive Date: 20170222
  Receipt Date: 20170222
  Transmission Date: 20170428
  Serious: No
  Sender: FDA-Public Use
  Company Number: US-APOTEX-2016AP006824

PATIENT
  Age: 49 Year
  Sex: Female

DRUGS (1)
  1. TIZANIDINE. [Suspect]
     Active Substance: TIZANIDINE
     Indication: MUSCLE SPASMS
     Dosage: 1 DF, TID
     Route: 048

REACTIONS (2)
  - Wrong patient received medication [Unknown]
  - Somnolence [Unknown]
